FAERS Safety Report 8894643 (Version 1)
Quarter: 2012Q4

REPORT INFORMATION
  Report Type: Report from Study
  Country: GB (occurrence: GB)
  Receive Date: 20121108
  Receipt Date: 20121108
  Transmission Date: 20130627
  Serious: Yes (Hospitalization)
  Sender: FDA-Public Use
  Company Number: GB-AMGEN-GBRCT2012018675

PATIENT
  Age: 51 Year
  Sex: Female
  Weight: 53 kg

DRUGS (3)
  1. ETANERCEPT [Suspect]
     Indication: RHEUMATOID ARTHRITIS
     Dosage: 25 mg, 2 times/wk
     Route: 058
     Dates: end: 20120108
  2. METHOTREXATE [Concomitant]
     Dosage: 7.5 mg, weekly
     Dates: end: 20120108
  3. FOLIC ACID [Concomitant]
     Dosage: 5 mg, 6 days per week

REACTIONS (2)
  - Large intestine perforation [Recovered/Resolved with Sequelae]
  - Gastrointestinal infection [Recovered/Resolved with Sequelae]
